FAERS Safety Report 10186773 (Version 1)
Quarter: 2014Q2

REPORT INFORMATION
  Report Type: Spontaneous
  Country: US (occurrence: US)
  Receive Date: 20140521
  Receipt Date: 20140521
  Transmission Date: 20141212
  Serious: Yes (Death)
  Sender: FDA-Public Use
  Company Number: US-JNJFOC-20140510827

PATIENT
  Age: 87 Year
  Sex: Female

DRUGS (4)
  1. IMODIUM A-D [Suspect]
     Route: 048
  2. IMODIUM A-D [Suspect]
     Indication: DIARRHOEA
     Route: 048
  3. IMODIUM MULTISYMPTOM RELIEF [Suspect]
     Route: 048
  4. IMODIUM MULTISYMPTOM RELIEF [Suspect]
     Indication: DIARRHOEA
     Route: 048

REACTIONS (2)
  - Death [Fatal]
  - Expired product administered [Unknown]
